FAERS Safety Report 9019398 (Version 1)
Quarter: 2013Q1

REPORT INFORMATION
  Report Type: Spontaneous
  Country: US (occurrence: US)
  Receive Date: 20130118
  Receipt Date: 20130118
  Transmission Date: 20140127
  Serious: Yes (Death, Other)
  Sender: FDA-Public Use
  Company Number: US-UCBSA-075375

PATIENT
  Age: 51 Year
  Sex: Male

DRUGS (4)
  1. ACETAMINOPHEN\HYDROCODONE [Suspect]
  2. ALPRAZOLAM [Suspect]
     Route: 048
  3. ZOLPIDEM [Suspect]
  4. DIPHENHYDRAMINE [Suspect]

REACTIONS (2)
  - Cardio-respiratory arrest [Fatal]
  - Completed suicide [Fatal]
